FAERS Safety Report 8871377 (Version 1)
Quarter: 2012Q4

REPORT INFORMATION
  Report Type: Spontaneous
  Country: US (occurrence: None)
  Receive Date: 20121026
  Receipt Date: 20121026
  Transmission Date: 20130627
  Serious: Yes (Life-Threatening, Hospitalization)
  Sender: FDA-Public Use
  Company Number: None

PATIENT
  Age: 59 Year
  Sex: Male
  Weight: 139 kg

DRUGS (15)
  1. ZIV-AFLIBERCEPT 25 MG/ML SANOFI USA [Suspect]
     Indication: CHEMOTHERAPY
     Route: 041
     Dates: start: 20120913, end: 20120913
  2. ZIV-AFLIBERCEPT 25 MG/ML SANOFI USA [Suspect]
     Indication: METASTASIS
     Route: 041
     Dates: start: 20120913, end: 20120913
  3. ZALTRAP [Suspect]
     Dates: start: 20120928, end: 20120928
  4. IRINOTECAN [Concomitant]
  5. CAPECITABINE [Concomitant]
  6. ATROPINE [Concomitant]
  7. DEXAMETHASONE [Concomitant]
  8. PALONOSETRON [Concomitant]
  9. FLUTICASONE-VERAMYST- [Concomitant]
  10. DILTIAZEM CD [Concomitant]
  11. EXETIMIBE [Concomitant]
  12. PEPCID [Concomitant]
  13. FEXOFENADINE [Concomitant]
  14. WARFARIN [Concomitant]
  15. INSULIN LISPRO [Concomitant]

REACTIONS (7)
  - Nausea [None]
  - Vomiting [None]
  - Blood pressure increased [None]
  - Respiratory failure [None]
  - Pulmonary alveolar haemorrhage [None]
  - International normalised ratio increased [None]
  - Pneumonia [None]
